FAERS Safety Report 7642432-4 (Version None)
Quarter: 2011Q3

REPORT INFORMATION
  Report Type: 
  Country: None (occurrence: None)
  Receive Date: 20110728
  Receipt Date: 20110124
  Transmission Date: 20111222
  Serious: No
  Sender: FDA-Public Use
  Company Number: US-MYLANLABS-2011S1000383

PATIENT
  Age: 78 Year
  Sex: Female

DRUGS (4)
  1. LEVOTHYROXINE SODIUM [Suspect]
     Route: 048
     Dates: start: 20101201
  2. GLUCOSAMINE + CHONDROITIN /01625901/ [Concomitant]
  3. LEVOTHYROXINE SODIUM [Suspect]
     Route: 048
     Dates: start: 20101201
  4. LEVOTHYROXINE SODIUM [Suspect]
     Indication: HYPOTHYROIDISM
     Route: 048
     Dates: end: 20101201

REACTIONS (11)
  - PRURITUS [None]
  - HEADACHE [None]
  - CONSTIPATION [None]
  - SLUGGISHNESS [None]
  - BLOOD PRESSURE INCREASED [None]
  - ABDOMINAL PAIN [None]
  - HEART RATE DECREASED [None]
  - FATIGUE [None]
  - SENSATION OF HEAVINESS [None]
  - BODY TEMPERATURE DECREASED [None]
  - ASTHENIA [None]
